FAERS Safety Report 20584706 (Version 1)
Quarter: 2022Q1

REPORT INFORMATION
  Report Type: Spontaneous
  Country: US (occurrence: US)
  Receive Date: 20220311
  Receipt Date: 20220311
  Transmission Date: 20220424
  Serious: No
  Sender: FDA-Public Use
  Company Number: US-PFIZER INC-202200250093

PATIENT
  Age: 62 Year
  Sex: Male

DRUGS (1)
  1. INLYTA [Suspect]
     Active Substance: AXITINIB
     Dosage: 3 TABLETS, 2X/DAY
     Dates: start: 20190430

REACTIONS (3)
  - COVID-19 [Unknown]
  - Viral infection [Unknown]
  - Decreased immune responsiveness [Unknown]
